FAERS Safety Report 4919697-2 (Version None)
Quarter: 2006Q1

REPORT INFORMATION
  Report Type: 
  Country: None (occurrence: None)
  Receive Date: 20060217
  Receipt Date: 20060208
  Transmission Date: 20060701
  Serious: Yes (Disabling)
  Sender: FDA-Public Use
  Company Number: HQWYE449523JAN06

PATIENT
  Age: 51 Year
  Sex: Female

DRUGS (11)
  1. NORGESTREL AND ETHINYL ESTRADIOL [Suspect]
     Indication: MENORRHAGIA
     Dosage: 1 TABLET 1X PER 1 DAY, ORAL
     Route: 048
     Dates: start: 20051224, end: 20060108
  2. NORGESTREL AND ETHINYL ESTRADIOL [Suspect]
     Indication: MENSTRUATION IRREGULAR
     Dosage: 1 TABLET 1X PER 1 DAY, ORAL
     Route: 048
     Dates: start: 20051224, end: 20060108
  3. KEISHIBUKURYOUGAN (HERBAL EXTRACTS NOS) [Concomitant]
  4. ORACEF (CEFALEXIN MONOHYDRATE) [Concomitant]
  5. INDOMETHACIN [Concomitant]
  6. COLCHICUM JTL LIQ [Concomitant]
  7. PREDNISOLONE [Concomitant]
  8. LOXONIN (LOXOPROFEN SODIUM) [Concomitant]
  9. ALFACALCIDOL (ALFACALCIDOL) [Concomitant]
  10. DEPAS (ETIZOLAM) [Concomitant]
  11. TOCOPHEROL (TOCOPHEROL) [Concomitant]

REACTIONS (8)
  - ALANINE AMINOTRANSFERASE INCREASED [None]
  - ASPARTATE AMINOTRANSFERASE INCREASED [None]
  - BEHCET'S SYNDROME [None]
  - BLINDNESS [None]
  - CONDITION AGGRAVATED [None]
  - EYE INFLAMMATION [None]
  - GAMMA-GLUTAMYLTRANSFERASE INCREASED [None]
  - HEPATIC FUNCTION ABNORMAL [None]
